FAERS Safety Report 8036324-9 (Version None)
Quarter: 2012Q1

REPORT INFORMATION
  Report Type: 
  Country: None (occurrence: None)
  Receive Date: 20120111
  Receipt Date: 20111019
  Transmission Date: 20120608
  Serious: No
  Sender: FDA-Public Use
  Company Number: US-GLAXOSMITHKLINE-A0949952A

PATIENT
  Age: 59 Year
  Sex: Male

DRUGS (1)
  1. JALYN [Suspect]
     Indication: PROSTATOMEGALY
     Route: 048
     Dates: start: 20110523

REACTIONS (2)
  - PROSTATOMEGALY [None]
  - DRUG INEFFECTIVE [None]
